FAERS Safety Report 7125396-1 (Version None)
Quarter: 2010Q4

REPORT INFORMATION
  Report Type: 
  Country: None (occurrence: None)
  Receive Date: 20101129
  Receipt Date: 20101116
  Transmission Date: 20110411
  Serious: Yes (Other)
  Sender: FDA-Public Use
  Company Number: US-ROCHE-722589

PATIENT
  Sex: Male
  Weight: 65.8 kg

DRUGS (3)
  1. ACCUTANE [Suspect]
     Route: 048
     Dates: start: 19980713, end: 19980916
  2. ACCUTANE [Suspect]
     Route: 048
     Dates: start: 19981101, end: 19990301
  3. ACCUTANE [Suspect]
     Route: 048
     Dates: start: 20010901, end: 20011201

REACTIONS (10)
  - ANAL FISTULA [None]
  - APHTHOUS STOMATITIS [None]
  - COLITIS ULCERATIVE [None]
  - DRY SKIN [None]
  - GASTROENTERITIS [None]
  - GASTROINTESTINAL INJURY [None]
  - INFLAMMATORY BOWEL DISEASE [None]
  - INGROWN HAIR [None]
  - PERIRECTAL ABSCESS [None]
  - RASH [None]
